FAERS Safety Report 8924359 (Version 2)
Quarter: 2012Q4

REPORT INFORMATION
  Report Type: 
  Country: SK (occurrence: SK)
  Receive Date: 20121126
  Receipt Date: 20121217
  Transmission Date: 20130627
  Serious: Yes (Other)
  Sender: FDA-Public Use
  Company Number: SK-GLAXOSMITHKLINE-B0846914A

PATIENT
  Age: 42 Year
  Sex: Female

DRUGS (3)
  1. TROBALT [Suspect]
     Indication: EPILEPSY
     Dosage: 100MG Three times per day
     Route: 048
     Dates: start: 20120802
  2. CARBAMAZEPINE [Concomitant]
     Indication: EPILEPSY
     Dosage: 600MG Twice per day
     Route: 048
     Dates: start: 20120723
  3. VALPROATE SODIUM [Concomitant]
     Indication: EPILEPSY
     Dosage: 500MG Twice per day
     Route: 048

REACTIONS (1)
  - Dementia [Recovered/Resolved]
